FAERS Safety Report 7465016-X (Version None)
Quarter: 2011Q2

REPORT INFORMATION
  Report Type: 
  Country: None (occurrence: None)
  Receive Date: 20110509
  Receipt Date: 20110427
  Transmission Date: 20111010
  Serious: Yes (Hospitalization)
  Sender: FDA-Public Use
  Company Number: US-JNJFOC-20110500058

PATIENT
  Sex: Female
  Weight: 81.65 kg

DRUGS (8)
  1. FENTANYL [Suspect]
     Indication: CROHN'S DISEASE
     Route: 062
  2. CYMBALTA [Concomitant]
     Indication: DEPRESSION
     Route: 048
  3. MERCAPTOPURINE [Concomitant]
     Indication: CROHN'S DISEASE
     Route: 048
  4. FENTANYL [Suspect]
     Indication: BONE PAIN
     Route: 062
  5. FENTANYL [Suspect]
     Indication: BONE PAIN
     Route: 062
  6. EFFEXOR [Concomitant]
     Indication: DEPRESSION
     Route: 048
  7. CLONAZEPAM [Concomitant]
     Indication: ANXIETY
     Route: 048
  8. OPANA [Concomitant]
     Indication: PAIN MANAGEMENT
     Route: 048

REACTIONS (4)
  - OVERDOSE [None]
  - DRUG INEFFECTIVE [None]
  - VOMITING [None]
  - DRUG DOSE OMISSION [None]
